FAERS Safety Report 7231718-3 (Version None)
Quarter: 2011Q1

REPORT INFORMATION
  Report Type: 
  Country: None (occurrence: None)
  Receive Date: 20110118
  Receipt Date: 20110107
  Transmission Date: 20110831
  Serious: Yes (Other)
  Sender: FDA-Public Use
  Company Number: US-ENDO PHARMACEUTICALS INC.-OPER20110008

PATIENT
  Sex: Female

DRUGS (3)
  1. XANAX [Suspect]
     Indication: DRUG ABUSE
     Dosage: UNK
  2. OPANA ER [Suspect]
     Indication: DRUG ABUSE
     Dosage: UNK
  3. OXYCONTIN [Suspect]
     Indication: DRUG ABUSE
     Dosage: UNK

REACTIONS (1)
  - DRUG DIVERSION [None]
